FAERS Safety Report 6070359-0 (Version None)
Quarter: 2009Q1

REPORT INFORMATION
  Report Type: 
  Country: None (occurrence: None)
  Receive Date: 20090209
  Receipt Date: 20090202
  Transmission Date: 20090719
  Serious: Yes (Death, Hospitalization)
  Sender: FDA-Public Use
  Company Number: JP-ELI_LILLY_AND_COMPANY-JP200901005415

PATIENT
  Age: 20 Year
  Sex: Male

DRUGS (3)
  1. HUMALOG [Suspect]
     Dosage: 900 U, DAILY (1/D)
     Route: 058
     Dates: start: 20070801, end: 20070801
  2. HUMAN INSULIN (RDNA ORIGIN) [Suspect]
     Dosage: 900 U, DAILY (1/D)
     Route: 058
     Dates: start: 20070801, end: 20070801
  3. ANTIDEPRESSANTS [Concomitant]
     Indication: DEPRESSION
     Route: 048

REACTIONS (6)
  - CONVULSION [None]
  - HYPERTHERMIA [None]
  - HYPOGLYCAEMIC ENCEPHALOPATHY [None]
  - INTENTIONAL OVERDOSE [None]
  - PNEUMONIA [None]
  - SUICIDE ATTEMPT [None]
